FAERS Safety Report 11711299 (Version 1)
Quarter: 2015Q4

REPORT INFORMATION
  Report Type: Spontaneous
  Country: US (occurrence: US)
  Receive Date: 20151104
  Receipt Date: 20151104
  Transmission Date: 20160304
  Serious: No
  Sender: FDA-Public Use
  Company Number: US-ELI_LILLY_AND_COMPANY-US201105005317

PATIENT
  Age: 71 Year
  Sex: Female

DRUGS (3)
  1. FORTEO [Suspect]
     Active Substance: TERIPARATIDE
     Indication: OSTEOPOROSIS
     Dosage: 20 UG, QD
     Route: 065
     Dates: start: 20110317
  2. FORTEO [Suspect]
     Active Substance: TERIPARATIDE
     Dosage: 20 UG, QD
  3. FORTEO [Suspect]
     Active Substance: TERIPARATIDE
     Dosage: 20 UG, QD

REACTIONS (12)
  - Drug dose omission [Unknown]
  - Visual impairment [Unknown]
  - Bacterial infection [Unknown]
  - Hypoacusis [Not Recovered/Not Resolved]
  - Pain in extremity [Unknown]
  - Neck pain [Unknown]
  - Drug dose omission [Unknown]
  - Back pain [Unknown]
  - Arthritis [Unknown]
  - Intentional device misuse [Unknown]
  - Gait disturbance [Not Recovered/Not Resolved]
  - Nausea [Not Recovered/Not Resolved]

NARRATIVE: CASE EVENT DATE: 201105
